FAERS Safety Report 7742860-2 (Version None)
Quarter: 2011Q3

REPORT INFORMATION
  Report Type: 
  Country: None (occurrence: None)
  Receive Date: 20110901
  Receipt Date: 20110825
  Transmission Date: 20111222
  Serious: Yes (Death)
  Sender: FDA-Public Use
  Company Number: DSA_45277_2011

PATIENT
  Sex: Female

DRUGS (2)
  1. XENAZINE [Suspect]
     Indication: HUNTINGTON'S DISEASE
     Dosage: 25 MG TID ORAL, 12.5 MG TID ORAL
     Route: 048
     Dates: start: 20100101, end: 20110320
  2. XENAZINE [Suspect]
     Indication: HUNTINGTON'S DISEASE
     Dosage: 25 MG TID ORAL, 12.5 MG TID ORAL
     Route: 048
     Dates: start: 20110321

REACTIONS (4)
  - MUSCLE DISORDER [None]
  - DISCOMFORT [None]
  - FALL [None]
  - HEADACHE [None]
